FAERS Safety Report 14630381 (Version 1)
Quarter: 2018Q1

REPORT INFORMATION
  Report Type: Report from Study
  Country: US (occurrence: US)
  Receive Date: 20180313
  Receipt Date: 20180313
  Transmission Date: 20180509
  Serious: Yes (Other)
  Sender: FDA-Public Use
  Company Number: US-AMGEN-USASL2018031570

PATIENT
  Age: 81 Year
  Sex: Female

DRUGS (1)
  1. REPATHA [Suspect]
     Active Substance: EVOLOCUMAB
     Indication: TYPE IIA HYPERLIPIDAEMIA
     Dosage: 140 MG, Q2WK
     Route: 065
     Dates: start: 20171005

REACTIONS (11)
  - Laryngitis [Unknown]
  - Mental impairment [Unknown]
  - Upper respiratory tract infection [Unknown]
  - Hypersensitivity [Unknown]
  - Alopecia [Unknown]
  - Urinary tract infection [Unknown]
  - Pharyngitis [Unknown]
  - Memory impairment [Unknown]
  - Hypersomnia [Unknown]
  - Stridor [Unknown]
  - Asthenia [Unknown]

NARRATIVE: CASE EVENT DATE: 2017
